FAERS Safety Report 22067276 (Version 1)
Quarter: 2023Q1

REPORT INFORMATION
  Report Type: Spontaneous
  Country: US (occurrence: US)
  Receive Date: 20230307
  Receipt Date: 20230307
  Transmission Date: 20230417
  Serious: Yes (Hospitalization, Other)
  Sender: FDA-Public Use
  Company Number: US-STERISCIENCE B.V.-2022-ST-000143

PATIENT
  Age: 22 Year
  Sex: Male

DRUGS (20)
  1. PIPERACILLIN SODIUM\TAZOBACTAM SODIUM [Suspect]
     Active Substance: PIPERACILLIN SODIUM\TAZOBACTAM SODIUM
     Indication: Osteomyelitis
     Dosage: UNK
     Route: 065
  2. PIPERACILLIN SODIUM\TAZOBACTAM SODIUM [Suspect]
     Active Substance: PIPERACILLIN SODIUM\TAZOBACTAM SODIUM
     Indication: Arthritis infective
  3. MEROPENEM [Suspect]
     Active Substance: MEROPENEM
     Indication: Osteomyelitis
     Dosage: UNK
     Route: 065
  4. MEROPENEM [Suspect]
     Active Substance: MEROPENEM
     Indication: Arthritis infective
  5. ERTAPENEM [Suspect]
     Active Substance: ERTAPENEM
     Indication: Osteomyelitis
     Dosage: UNK
     Route: 065
  6. ERTAPENEM [Suspect]
     Active Substance: ERTAPENEM
     Indication: Arthritis infective
  7. DAPTOMYCIN [Suspect]
     Active Substance: DAPTOMYCIN
     Indication: Osteomyelitis
     Dosage: UNK
     Route: 065
  8. DAPTOMYCIN [Suspect]
     Active Substance: DAPTOMYCIN
     Indication: Arthritis infective
  9. AMPICILLIN SODIUM\SULBACTAM SODIUM [Suspect]
     Active Substance: AMPICILLIN SODIUM\SULBACTAM SODIUM
     Indication: Osteomyelitis
     Dosage: UNK
     Route: 065
  10. AMPICILLIN SODIUM\SULBACTAM SODIUM [Suspect]
     Active Substance: AMPICILLIN SODIUM\SULBACTAM SODIUM
     Indication: Arthritis infective
  11. MICAFUNGIN [Suspect]
     Active Substance: MICAFUNGIN
     Indication: Osteomyelitis
     Dosage: UNK
     Route: 065
  12. MICAFUNGIN [Suspect]
     Active Substance: MICAFUNGIN
     Indication: Arthritis infective
  13. NYSTATIN [Suspect]
     Active Substance: NYSTATIN
     Indication: Osteomyelitis
     Dosage: UNK
     Route: 065
  14. NYSTATIN [Suspect]
     Active Substance: NYSTATIN
     Indication: Arthritis infective
  15. AMPHOTERICIN B [Suspect]
     Active Substance: AMPHOTERICIN B
     Indication: Osteomyelitis
     Dosage: UNK
     Route: 065
  16. AMPHOTERICIN B [Suspect]
     Active Substance: AMPHOTERICIN B
     Indication: Arthritis infective
  17. FLUCYTOSINE [Suspect]
     Active Substance: FLUCYTOSINE
     Indication: Osteomyelitis
     Dosage: UNK
     Route: 065
  18. FLUCYTOSINE [Suspect]
     Active Substance: FLUCYTOSINE
     Indication: Arthritis infective
  19. POSACONAZOLE [Suspect]
     Active Substance: POSACONAZOLE
     Indication: Osteomyelitis
     Dosage: UNK
     Route: 065
  20. POSACONAZOLE [Suspect]
     Active Substance: POSACONAZOLE
     Indication: Arthritis infective

REACTIONS (1)
  - Serum sickness [Unknown]
